FAERS Safety Report 11482590 (Version 1)
Quarter: 2015Q3

REPORT INFORMATION
  Report Type: Spontaneous
  Country: US (occurrence: None)
  Receive Date: 20150908
  Receipt Date: 20150908
  Transmission Date: 20151125
  Serious: No
  Sender: FDA-Public Use
  Company Number: None

PATIENT
  Age: 56 Year
  Sex: Male
  Weight: 99.79 kg

DRUGS (3)
  1. LISINAPROL [Concomitant]
  2. AMIODIPINE [Concomitant]
  3. HARVONI [Suspect]
     Active Substance: LEDIPASVIR\SOFOSBUVIR
     Indication: HEPATITIS C
     Dosage: 1 A DAY  ONCE DAILY TAKEN BY MOUTH
     Route: 048

REACTIONS (8)
  - Gait disturbance [None]
  - Rash erythematous [None]
  - Oral mucosal eruption [None]
  - Rash pruritic [None]
  - Localised infection [None]
  - Rash generalised [None]
  - Oral pain [None]
  - Blister [None]

NARRATIVE: CASE EVENT DATE: 20150624
